FAERS Safety Report 7903786-4 (Version None)
Quarter: 2011Q4

REPORT INFORMATION
  Report Type: 
  Country: None (occurrence: None)
  Receive Date: 20111109
  Receipt Date: 20111102
  Transmission Date: 20120403
  Serious: Yes (Death, Hospitalization)
  Sender: FDA-Public Use
  Company Number: GB-ROCHE-1009034

PATIENT
  Sex: Male

DRUGS (10)
  1. LUCENTIS [Suspect]
     Indication: PRODUCT USED FOR UNKNOWN INDICATION
     Route: 050
     Dates: start: 20091111
  2. DIGOXIN [Concomitant]
  3. CLOPIDOGREL [Concomitant]
  4. PERINDOPRIL ERBUMINE [Concomitant]
  5. IRON [Concomitant]
  6. QUININE SULFATE [Concomitant]
  7. SIMVASTATIN [Concomitant]
  8. BUMETANIDE [Concomitant]
  9. FUROSEMIDE [Concomitant]
  10. OMEPRAZOLE [Concomitant]

REACTIONS (3)
  - CARDIAC FAILURE CONGESTIVE [None]
  - PNEUMONIA [None]
  - MULTI-ORGAN FAILURE [None]
